FAERS Safety Report 14013504 (Version 1)
Quarter: 2017Q3

REPORT INFORMATION
  Report Type: Spontaneous
  Country: FR (occurrence: FR)
  Receive Date: 20170926
  Receipt Date: 20170926
  Transmission Date: 20171128
  Serious: Yes (Other)
  Sender: FDA-Public Use
  Company Number: FR-MERCK KGAA-2027809

PATIENT
  Age: 67 Year
  Sex: Female

DRUGS (1)
  1. NOVOTHYROX [Suspect]
     Active Substance: LEVOTHYROXINE SODIUM
     Indication: HYPOTHYROIDISM
     Route: 048
     Dates: start: 20170401, end: 20170818

REACTIONS (6)
  - Hot flush [Recovering/Resolving]
  - Diarrhoea [Recovered/Resolved]
  - Blood thyroid stimulating hormone increased [Not Recovered/Not Resolved]
  - Fatigue [Recovering/Resolving]
  - Hyperhidrosis [Recovering/Resolving]
  - Alopecia [Unknown]

NARRATIVE: CASE EVENT DATE: 201705
